FAERS Safety Report 9275421 (Version 1)
Quarter: 2013Q1

REPORT INFORMATION
  Report Type: Spontaneous
  Country: US (occurrence: None)
  Receive Date: 20130214
  Receipt Date: 20130214
  Transmission Date: 20140127
  Serious: Yes (Other)
  Sender: FDA-Public Use
  Company Number: 54973 AE # 1220

PATIENT
  Age: 67 Year
  Sex: Female

DRUGS (4)
  1. HYLAND^S BELLADONNA 30X TABLETS [Suspect]
     Indication: PYREXIA
     Dosage: 4 TABLETS QID X 3 MONTHS
  2. HYLAND^S BELLADONNA 30X TABLETS [Suspect]
     Indication: INFLAMMATION
     Dosage: 4 TABLETS QID X 3 MONTHS
  3. LETROZOLE [Concomitant]
  4. BABY ASA [Concomitant]

REACTIONS (2)
  - Haemoglobin decreased [None]
  - Blood iron decreased [None]
